FAERS Safety Report 10149793 (Version 1)
Quarter: 2014Q2

REPORT INFORMATION
  Report Type: Spontaneous
  Country: DE (occurrence: None)
  Receive Date: 20140430
  Receipt Date: 20140430
  Transmission Date: 20141212
  Serious: Yes (Hospitalization, Other)
  Sender: FDA-Public Use
  Company Number: HRA-CDB20140058

PATIENT
  Age: 41 Year
  Sex: Female

DRUGS (1)
  1. ELLAONE [Suspect]
     Indication: POST COITAL CONTRACEPTION
     Dates: start: 20140213

REACTIONS (5)
  - Menorrhagia [None]
  - Dysmenorrhoea [None]
  - Vertigo [None]
  - Loss of consciousness [None]
  - Fall [None]
